FAERS Safety Report 13331987 (Version 1)
Quarter: 2017Q1

REPORT INFORMATION
  Report Type: Spontaneous
  Country: US (occurrence: US)
  Receive Date: 20170314
  Receipt Date: 20170314
  Transmission Date: 20170428
  Serious: No
  Sender: FDA-Public Use
  Company Number: US-JNJFOC-20170214995

PATIENT
  Age: 76 Year
  Sex: Female
  Weight: 76.66 kg

DRUGS (1)
  1. TYLENOL EXTRA STRENGTH [Suspect]
     Active Substance: ACETAMINOPHEN
     Indication: PAIN
     Dosage: DOSE: 1 - 2 CAPLETS
     Route: 048
     Dates: start: 20170203

REACTIONS (1)
  - Drug administration error [Unknown]
